FAERS Safety Report 8594607 (Version 3)
Quarter: 2012Q4

REPORT INFORMATION
  Report Type: 
  Country: US (occurrence: US)
  Receive Date: 20120604
  Receipt Date: 20121022
  Transmission Date: 20130627
  Serious: Yes (Hospitalization, Congenital Anomaly)
  Sender: FDA-Public Use
  Company Number: US-GLAXOSMITHKLINE-A0979908A

PATIENT
  Age: 0 Year
  Sex: Male
  Weight: 4.1 kg

DRUGS (7)
  1. PAXIL [Suspect]
     Indication: PRODUCT USED FOR UNKNOWN INDICATION
     Route: 064
     Dates: start: 20021003
  2. PAROXETINE HYDROCHLORIDE [Suspect]
     Indication: PRODUCT USED FOR UNKNOWN INDICATION
     Dosage: 30MG per day
     Route: 064
  3. DEPAKOTE [Concomitant]
     Route: 064
  4. NPH INSULIN [Concomitant]
     Route: 064
  5. HUMALOG INSULIN [Concomitant]
     Route: 064
  6. ZYRTEC [Concomitant]
     Route: 064
  7. PRENATAL VITAMINS [Concomitant]
     Route: 064

REACTIONS (4)
  - Patent ductus arteriosus [Not Recovered/Not Resolved]
  - Atrial septal defect [Unknown]
  - Ventricular septal defect [Unknown]
  - Cardiac murmur [Unknown]
